FAERS Safety Report 9992433 (Version 2)
Quarter: 2014Q1

REPORT INFORMATION
  Report Type: Spontaneous
  Country: JP (occurrence: JP)
  Receive Date: 20140310
  Receipt Date: 20140321
  Transmission Date: 20141002
  Serious: Yes (Other)
  Sender: FDA-Public Use
  Company Number: JP-GLAXOSMITHKLINE-B0973397A

PATIENT
  Age: 21 Year
  Sex: Female
  Weight: 45 kg

DRUGS (6)
  1. RELENZA [Suspect]
     Indication: INFLUENZA
     Dosage: 10MG TWICE PER DAY
     Route: 055
     Dates: start: 20140220, end: 20140221
  2. LOXONIN [Concomitant]
     Indication: INFLUENZA
     Dosage: 60MG PER DAY
     Route: 048
     Dates: start: 20140221, end: 20140221
  3. CHINESE MEDICINE [Concomitant]
     Indication: INFLUENZA
     Dosage: 1IUAX PER DAY
     Route: 048
     Dates: start: 20140221, end: 20140224
  4. CLARITH [Concomitant]
     Indication: INFLUENZA
     Dosage: 200MG TWICE PER DAY
     Route: 048
     Dates: start: 20140220, end: 20140224
  5. CALONAL [Concomitant]
     Indication: INFLUENZA
     Dosage: 400MG TWICE PER DAY
     Route: 048
     Dates: start: 20140220, end: 20140222
  6. RESPLEN [Concomitant]
     Route: 048

REACTIONS (6)
  - Mental impairment [Recovered/Resolved]
  - Abnormal behaviour [Recovered/Resolved]
  - Moaning [Recovered/Resolved]
  - Dyspnoea [Recovered/Resolved]
  - Lacrimation increased [Recovered/Resolved]
  - Body temperature increased [Unknown]
